FAERS Safety Report 12206755 (Version 1)
Quarter: 2016Q1

REPORT INFORMATION
  Report Type: Spontaneous
  Country: IT (occurrence: IT)
  Receive Date: 20160324
  Receipt Date: 20160324
  Transmission Date: 20160526
  Serious: Yes (Other)
  Sender: FDA-Public Use
  Company Number: IT-009507513-1603ITA007992

PATIENT
  Age: 80 Year
  Sex: Male

DRUGS (7)
  1. SERENASE [Suspect]
     Active Substance: HALOPERIDOL
     Indication: BEHAVIOURAL AND PSYCHIATRIC SYMPTOMS OF DEMENTIA
     Dosage: 20 DROPS DAILY (STRENGTH: 2 MG/ML)
     Route: 048
     Dates: start: 20160101, end: 20160121
  2. PLAVIX [Concomitant]
     Active Substance: CLOPIDOGREL BISULFATE
     Route: 048
  3. LAROXYL [Suspect]
     Active Substance: AMITRIPTYLINE
     Indication: BEHAVIOURAL AND PSYCHIATRIC SYMPTOMS OF DEMENTIA
     Dosage: 7 DROPS DAILY (STRENGTH:40MG/ML)
     Route: 048
     Dates: start: 20160101, end: 20160121
  4. LASIX [Concomitant]
     Active Substance: FUROSEMIDE
     Route: 048
  5. TRITTICO [Suspect]
     Active Substance: TRAZODONE HYDROCHLORIDE
     Indication: BEHAVIOURAL AND PSYCHIATRIC SYMPTOMS OF DEMENTIA
     Dosage: 2 DOSE UNITS DAILY
     Route: 048
     Dates: start: 20160101, end: 20160121
  6. BISOPROLOL FUMARATE. [Concomitant]
     Active Substance: BISOPROLOL FUMARATE
     Route: 048
  7. MIRTAZAPINE. [Suspect]
     Active Substance: MIRTAZAPINE
     Indication: BEHAVIOURAL AND PSYCHIATRIC SYMPTOMS OF DEMENTIA
     Dosage: 30 MG, QD
     Route: 048
     Dates: start: 20160101, end: 20160121

REACTIONS (3)
  - Confusional state [Recovering/Resolving]
  - Sopor [Recovering/Resolving]
  - Dysarthria [Recovering/Resolving]

NARRATIVE: CASE EVENT DATE: 20160121
